FAERS Safety Report 9464922 (Version 3)
Quarter: 2013Q4

REPORT INFORMATION
  Report Type: Spontaneous
  Country: US (occurrence: US)
  Receive Date: 20130819
  Receipt Date: 20131129
  Transmission Date: 20140711
  Serious: Yes (Death)
  Sender: FDA-Public Use
  Company Number: US-BRISTOL-MYERS SQUIBB COMPANY-19193770

PATIENT
  Age: 64 Year
  Sex: Male
  Weight: 96.6 kg

DRUGS (10)
  1. BYETTA PEN DISPOSABLE [Suspect]
     Dosage: FORMULATION-BYETTA 10MCG/0.04ML
  2. GLUCOPHAGE TABS 1000 MG [Suspect]
     Route: 048
  3. PRANDIN [Suspect]
     Dosage: TAB
     Route: 048
  4. ACTOS [Suspect]
     Dosage: TAB
     Route: 048
  5. APIDRA [Suspect]
     Dosage: 1DF-100 UNIT/ML
     Route: 058
  6. JANUVIA [Suspect]
     Dosage: TAB
     Route: 048
  7. ZESTRIL [Concomitant]
     Dosage: TAB
     Route: 048
  8. LANTUS [Concomitant]
  9. NOVOLOG [Concomitant]
  10. LISINOPRIL [Concomitant]

REACTIONS (1)
  - Pancreatic carcinoma metastatic [Fatal]
